FAERS Safety Report 17763218 (Version 1)
Quarter: 2020Q2

REPORT INFORMATION
  Report Type: Spontaneous
  Country: US (occurrence: US)
  Receive Date: 20200509
  Receipt Date: 20200509
  Transmission Date: 20200714
  Serious: Yes (Life-Threatening, Other)
  Sender: FDA-Public Use
  Company Number: US-HIKMA PHARMACEUTICALS USA INC.-US-H14001-20-02175

PATIENT

DRUGS (1)
  1. MEPERIDINE [Suspect]
     Active Substance: MEPERIDINE
     Indication: PAIN
     Route: 048

REACTIONS (6)
  - Tongue disorder [Unknown]
  - Feeling jittery [Unknown]
  - Vocal cord disorder [Unknown]
  - Oesophageal disorder [Unknown]
  - Oropharyngeal discomfort [Unknown]
  - Bronchial disorder [Unknown]
